FAERS Safety Report 25998878 (Version 1)
Quarter: 2025Q4

REPORT INFORMATION
  Report Type: Spontaneous
  Country: CN (occurrence: CN)
  Receive Date: 20251105
  Receipt Date: 20251105
  Transmission Date: 20260117
  Serious: Yes (Other)
  Sender: ACCORD
  Company Number: None

PATIENT
  Age: 43 Year
  Sex: Female
  Weight: 59 kg

DRUGS (4)
  1. TRASTUZUMAB [Suspect]
     Active Substance: TRASTUZUMAB
     Indication: Neoplasm malignant
     Dosage: 360 MILLIGRAM, QD
     Route: 042
     Dates: start: 20250703, end: 20250703
  2. PERJETA [Suspect]
     Active Substance: PERTUZUMAB
     Indication: Neoplasm malignant
     Dosage: 420 MILLIGRAM, QD
     Route: 042
     Dates: start: 20250703, end: 20250703
  3. PACLITAXEL [Suspect]
     Active Substance: PACLITAXEL
     Indication: Neoplasm malignant
     Dosage: 270 MILLIGRAM, QD
     Route: 042
     Dates: start: 20250703, end: 20250703
  4. CARBOPLATIN [Suspect]
     Active Substance: CARBOPLATIN
     Indication: Neoplasm malignant
     Dosage: 0.65 GRAM, QD
     Route: 042
     Dates: start: 20250703, end: 20250703

REACTIONS (1)
  - Myelosuppression [Recovered/Resolved]

NARRATIVE: CASE EVENT DATE: 20250724
